FAERS Safety Report 7100083-4 (Version None)
Quarter: 2010Q4

REPORT INFORMATION
  Report Type: 
  Country: None (occurrence: None)
  Receive Date: 20101112
  Receipt Date: 20091023
  Transmission Date: 20110411
  Serious: No
  Sender: FDA-Public Use
  Company Number: A0813188A

PATIENT
  Age: 80 Year
  Sex: Female

DRUGS (8)
  1. CARVEDILOL [Suspect]
     Indication: HYPERTENSION
     Route: 048
     Dates: start: 20090101, end: 20090101
  2. GLYNASE [Concomitant]
  3. PROTONIX [Concomitant]
  4. PRINIVIL [Concomitant]
  5. PLAVIX [Concomitant]
  6. KLONOPIN [Concomitant]
  7. GLYBURIDE [Concomitant]
  8. HUMULIN 70/30 [Concomitant]

REACTIONS (3)
  - DIZZINESS [None]
  - MALAISE [None]
  - NAUSEA [None]
